FAERS Safety Report 19076163 (Version 1)
Quarter: 2021Q1

REPORT INFORMATION
  Report Type: Spontaneous
  Country: FR (occurrence: FR)
  Receive Date: 20210330
  Receipt Date: 20210330
  Transmission Date: 20210420
  Serious: Yes (Other)
  Sender: FDA-Public Use
  Company Number: FR-BRISTOL-MYERS SQUIBB COMPANY-BMS-2021-028954

PATIENT
  Age: 43 Year
  Sex: Male

DRUGS (1)
  1. NIVOLUMAB [Suspect]
     Active Substance: NIVOLUMAB
     Indication: SQUAMOUS CELL CARCINOMA OF THE TONGUE
     Dosage: 3 MG/KG  EVERY 14 DAYS FOR 10 WEEKS.
     Route: 042
     Dates: start: 201708

REACTIONS (3)
  - Colitis ulcerative [Unknown]
  - Autoimmune thyroiditis [Unknown]
  - Off label use [Unknown]

NARRATIVE: CASE EVENT DATE: 201806
